FAERS Safety Report 5326394-0 (Version None)
Quarter: 2007Q2

REPORT INFORMATION
  Report Type: 
  Country: None (occurrence: None)
  Receive Date: 20070516
  Receipt Date: 20070508
  Transmission Date: 20071010
  Serious: Yes (Hospitalization)
  Sender: FDA-Public Use
  Company Number: US-BAXTER-2007BH004168

PATIENT
  Age: 30 Month
  Sex: Male

DRUGS (3)
  1. FENTANYL CITRATE [Suspect]
     Indication: ANAESTHESIA
     Dosage: DOSE UNIT:UNKNOWN
     Route: 065
     Dates: start: 20070327, end: 20070327
  2. VERSED [Suspect]
     Indication: ANAESTHESIA
     Dosage: DOSE UNIT:UNKNOWN
     Route: 065
     Dates: start: 20070327, end: 20070327
  3. PENTOBARBITAL CAP [Suspect]
     Indication: ANAESTHESIA
     Dosage: DOSE UNIT:UNKNOWN
     Route: 065
     Dates: start: 20070327, end: 20070327

REACTIONS (1)
  - GAIT DISTURBANCE [None]
